FAERS Safety Report 4462818-9 (Version None)
Quarter: 2004Q3

REPORT INFORMATION
  Report Type: 
  Country: None (occurrence: None)
  Receive Date: 20040929
  Receipt Date: 20040917
  Transmission Date: 20050211
  Serious: Yes (Life-Threatening, Hospitalization)
  Sender: FDA-Public Use
  Company Number: PANC00304002936

PATIENT
  Age: 47 Year
  Sex: Female
  Weight: 80 kg

DRUGS (15)
  1. CREON 25000 (PANCREATIN) [Suspect]
     Indication: GASTROINTESTINAL DISORDER
     Dosage: PO
     Route: 048
     Dates: start: 20000101
  2. CREON 25000 (PANCREATIN) [Suspect]
     Indication: PANCREATITIS
     Dosage: PO
     Route: 048
     Dates: start: 20000101
  3. ZOPICLONE (ZOPLICONE) [Concomitant]
  4. ESOMEPRAZOLE (ESOMEPRAZOLE) [Concomitant]
  5. ATORVASTATIN (ATORVASTATIN) [Concomitant]
  6. INDAPAMIDE [Concomitant]
  7. DOMPERIDONE (DOMPERIDONE) [Concomitant]
  8. GABAPENTIN [Concomitant]
  9. FLUOXETINE [Concomitant]
  10. MORPHINE SULFATE [Concomitant]
  11. MORPHINE SULFATE [Concomitant]
  12. ORAMORPH SR [Concomitant]
  13. OLMESARTAN (OLMESARTAN) [Concomitant]
  14. HORMON HRT (HORMONES) [Concomitant]
  15. ENTIVE (NUTRITIONAL AGENTS AND VITAMINS) [Concomitant]

REACTIONS (8)
  - CROHN'S DISEASE [None]
  - GASTROINTESTINAL CARCINOMA [None]
  - IMPAIRED HEALING [None]
  - LARGE INTESTINE PERFORATION [None]
  - PERITONITIS [None]
  - POSTOPERATIVE INFECTION [None]
  - POSTOPERATIVE WOUND COMPLICATION [None]
  - SMALL INTESTINAL STENOSIS [None]
